FAERS Safety Report 9495204 (Version 1)
Quarter: 2013Q3

REPORT INFORMATION
  Report Type: Spontaneous
  Country: MX (occurrence: MX)
  Receive Date: 20130903
  Receipt Date: 20130903
  Transmission Date: 20140515
  Serious: Yes (Hospitalization, Other)
  Sender: FDA-Public Use
  Company Number: PHHY2013MX096071

PATIENT
  Age: 72 Year
  Sex: Female

DRUGS (2)
  1. ACLASTA [Suspect]
     Indication: BONE DECALCIFICATION
     Dosage: 2 INJECTIONS OF 5 MG/100ML, ANNUAL
     Route: 042
  2. ACLASTA [Suspect]
     Dosage: 1 INJECTION OF 5 MG/100ML, ANNUAL
     Route: 042

REACTIONS (6)
  - Bronchitis [Recovered/Resolved]
  - Accident [Unknown]
  - Patella fracture [Unknown]
  - Eyelid ptosis [Unknown]
  - Skin disorder [Unknown]
  - Inappropriate schedule of drug administration [Unknown]
